FAERS Safety Report 8785684 (Version 6)
Quarter: 2014Q3

REPORT INFORMATION
  Report Type: Spontaneous
  Country: US (occurrence: US)
  Receive Date: 20120914
  Receipt Date: 20140821
  Transmission Date: 20150326
  Serious: Yes (Life-Threatening, Hospitalization, Other)
  Sender: FDA-Public Use
  Company Number: US-009507513-1209USA004273

PATIENT
  Sex: Female
  Weight: 75.87 kg

DRUGS (2)
  1. NUVARING [Suspect]
     Active Substance: ETHINYL ESTRADIOL\ETONOGESTREL
     Dosage: UNK
     Route: 067
     Dates: start: 20090820, end: 20101023
  2. NUVARING [Suspect]
     Active Substance: ETHINYL ESTRADIOL\ETONOGESTREL
     Indication: CONTRACEPTION
     Dosage: UNK
     Route: 067
     Dates: start: 2005, end: 20081105

REACTIONS (31)
  - Pulmonary embolism [Recovering/Resolving]
  - Hypercoagulation [Unknown]
  - Tension headache [Unknown]
  - Pulmonary valve incompetence [Unknown]
  - Electrocardiogram ST-T segment abnormal [Unknown]
  - Colon adenoma [Unknown]
  - Apnoea [Unknown]
  - Menorrhagia [Unknown]
  - Mitral valve incompetence [Unknown]
  - Anxiety [Not Recovered/Not Resolved]
  - Increased tendency to bruise [Unknown]
  - Bone graft [Unknown]
  - Hypoaesthesia [Recovering/Resolving]
  - Autoimmune disorder [Unknown]
  - Tricuspid valve incompetence [Unknown]
  - Sinus bradycardia [Unknown]
  - Fungal infection [Unknown]
  - Back pain [Unknown]
  - Seasonal allergy [Unknown]
  - Blood pressure abnormal [Unknown]
  - Vitamin D deficiency [Unknown]
  - Palpitations [Unknown]
  - Deep vein thrombosis [Recovering/Resolving]
  - Left atrial dilatation [Unknown]
  - Large intestinal polypectomy [Unknown]
  - Wisdom teeth removal [Unknown]
  - Bone graft [Unknown]
  - Electrocardiogram abnormal [Unknown]
  - Snoring [Unknown]
  - Papilloma [Unknown]
  - Mammary duct ectasia [Unknown]

NARRATIVE: CASE EVENT DATE: 20060818
